FAERS Safety Report 6496982-7 (Version None)
Quarter: 2009Q4

REPORT INFORMATION
  Report Type: 
  Country: None (occurrence: None)
  Receive Date: 20091215
  Receipt Date: 20081114
  Transmission Date: 20100525
  Serious: No
  Sender: FDA-Public Use
  Company Number: A0757906A

PATIENT
  Age: 55 Year
  Sex: Female

DRUGS (1)
  1. AVODART [Suspect]
     Dosage: .5MG PER DAY
     Route: 048
     Dates: start: 20080901

REACTIONS (2)
  - DIARRHOEA [None]
  - NAUSEA [None]
